FAERS Safety Report 4497111-1 (Version None)
Quarter: 2004Q4

REPORT INFORMATION
  Report Type: 
  Country: None (occurrence: None)
  Receive Date: 20041110
  Receipt Date: 20040924
  Transmission Date: 20050328
  Serious: Yes (Hospitalization)
  Sender: FDA-Public Use
  Company Number: US-BRISTOL-MYERS SQUIBB COMPANY-12711727

PATIENT
  Age: 35 Year
  Sex: Male

DRUGS (11)
  1. EFAVIRENZ [Suspect]
     Indication: HIV INFECTION
     Dosage: TAKEN OFF STUDY ON 27-AUG-2004 (WEEK 25).RESTARTED, OFF STUDY ON SEP-2004.
     Dates: start: 20040305
  2. TENOFOVIR [Suspect]
     Indication: HIV INFECTION
     Dosage: TAKEN OFF STUDY DRUG ON 19-JUL-2004. RESTARTED, OFF STUDY ON SEP-2004.
     Dates: start: 20040305
  3. LAMIVUDINE [Suspect]
     Indication: HIV INFECTION
     Dosage: TAKEN OFF STUDY DRUG ON 19-JUL-2004. RESTARTED, OFF STUDY ON SEP-2004.
     Dates: start: 20040305
  4. COMBIVIR [Concomitant]
     Dates: start: 20040701
  5. TRAZODONE HCL [Concomitant]
  6. DIGOXIN [Concomitant]
  7. ENALAPRIL [Concomitant]
  8. METOPROLOL SUCCINATE [Concomitant]
  9. WARFARIN SODIUM [Concomitant]
  10. ZOLPIDEM [Concomitant]
  11. FLUOXETINE [Concomitant]

REACTIONS (4)
  - CARDIOMYOPATHY [None]
  - SURGICAL PROCEDURE REPEATED [None]
  - TREATMENT NONCOMPLIANCE [None]
  - VENTRICULAR FAILURE [None]
